FAERS Safety Report 24557752 (Version 2)
Quarter: 2024Q4

REPORT INFORMATION
  Report Type: Report from Study
  Country: CN (occurrence: CN)
  Receive Date: 20241028
  Receipt Date: 20241219
  Transmission Date: 20250115
  Serious: Yes (Other)
  Sender: INCYTE
  Company Number: CN-INNOVENTBIO-INN2024007944

PATIENT

DRUGS (1)
  1. PEMAZYRE [Suspect]
     Active Substance: PEMIGATINIB
     Indication: Soft tissue sarcoma
     Dosage: 9 MG
     Route: 048
     Dates: start: 20240821

REACTIONS (4)
  - Hypokalaemia [Recovering/Resolving]
  - Pneumonia [Recovering/Resolving]
  - Hepatic steatosis [Recovering/Resolving]
  - Decreased appetite [Not Recovered/Not Resolved]

NARRATIVE: CASE EVENT DATE: 20240821
